FAERS Safety Report 8187322-6 (Version None)
Quarter: 2012Q1

REPORT INFORMATION
  Report Type: 
  Country: None (occurrence: None)
  Receive Date: 20120306
  Receipt Date: 20120228
  Transmission Date: 20120608
  Serious: Yes (Other)
  Sender: FDA-Public Use
  Company Number: IE-PFIZER INC-2012053236

PATIENT
  Age: 43 Year
  Sex: Female

DRUGS (2)
  1. VIBRAMYCIN [Suspect]
     Indication: ACNE
     Dosage: 1X/DAY
     Dates: start: 20111206, end: 20111208
  2. BENZACLIN [Suspect]
     Indication: ACNE
     Dosage: ONCE DAILY AT NIGHT
     Route: 061
     Dates: start: 20111206, end: 20111208

REACTIONS (3)
  - ERYTHEMA [None]
  - FACE OEDEMA [None]
  - EYE OEDEMA [None]
